FAERS Safety Report 19855719 (Version 1)
Quarter: 2021Q3

REPORT INFORMATION
  Report Type: Other
  Country: GB (occurrence: GB)
  Receive Date: 20210920
  Receipt Date: 20210920
  Transmission Date: 20211014
  Serious: Yes (Disabling, Other)
  Sender: FDA-Public Use
  Company Number: GB-ASTELLAS-2021US034648

PATIENT
  Age: 85 Year
  Sex: Male

DRUGS (3)
  1. LISINOPRIL. [Concomitant]
     Active Substance: LISINOPRIL
     Indication: ILL-DEFINED DISORDER
     Dosage: UNK UNK, UNKNOWN FREQ.
     Route: 065
  2. TRIPTORELIN ACETATE [Concomitant]
     Active Substance: TRIPTORELIN ACETATE
     Indication: ILL-DEFINED DISORDER
     Dosage: UNK UNK, UNKNOWN FREQ.
     Route: 065
  3. ENZALUTAMIDE [Suspect]
     Active Substance: ENZALUTAMIDE
     Indication: PROSTATE CANCER
     Route: 048
     Dates: start: 20201113, end: 20210802

REACTIONS (4)
  - Malignant neoplasm progression [Unknown]
  - Dysphagia [Not Recovered/Not Resolved]
  - Dysarthria [Not Recovered/Not Resolved]
  - Ophthalmoplegia [Not Recovered/Not Resolved]

NARRATIVE: CASE EVENT DATE: 202105
